FAERS Safety Report 10789177 (Version 1)
Quarter: 2015Q1

REPORT INFORMATION
  Report Type: Spontaneous
  Country: US (occurrence: None)
  Receive Date: 20150211
  Receipt Date: 20150211
  Transmission Date: 20150721
  Serious: Yes (Other)
  Sender: FDA-Public Use
  Company Number: None

PATIENT
  Age: 56 Year
  Sex: Female

DRUGS (1)
  1. AFINITOR [Suspect]
     Active Substance: EVEROLIMUS
     Route: 048
     Dates: start: 20140221

REACTIONS (4)
  - Paraesthesia [None]
  - Hypoaesthesia oral [None]
  - Paraesthesia oral [None]
  - Palatal disorder [None]

NARRATIVE: CASE EVENT DATE: 20150208
